FAERS Safety Report 4881276-3 (Version None)
Quarter: 2005Q4

REPORT INFORMATION
  Report Type: 
  Country: None (occurrence: None)
  Receive Date: 20051212
  Receipt Date: 20051006
  Transmission Date: 20060501
  Serious: Yes (Other)
  Sender: FDA-Public Use
  Company Number: 2005-02082

PATIENT
  Age: 85 Year
  Sex: Male

DRUGS (3)
  1. VELCADE [Suspect]
     Indication: MULTIPLE MYELOMA
     Dates: end: 20050913
  2. TERAZOSIN (TERAZOSIN) [Concomitant]
  3. ACYCLOVIR [Concomitant]

REACTIONS (1)
  - DEAFNESS [None]
